FAERS Safety Report 25522588 (Version 1)
Quarter: 2025Q3

REPORT INFORMATION
  Report Type: Spontaneous
  Country: EU (occurrence: None)
  Receive Date: 20250707
  Receipt Date: 20250707
  Transmission Date: 20251020
  Serious: Yes (Death)
  Sender: ORION
  Company Number: None

PATIENT
  Age: 87 Year
  Sex: Male

DRUGS (14)
  1. METHOTREXATE [Suspect]
     Active Substance: METHOTREXATE
     Indication: Immunosuppression
     Dosage: STRENGTH: 10 MG
     Dates: start: 20250317, end: 20250425
  2. CLOZAPINE [Suspect]
     Active Substance: CLOZAPINE
     Indication: Antipsychotic therapy
     Dosage: 0.25 TABLET AT 8 A.M. AND 0.25 TABLET AT 6 P.M.
     Dates: start: 20250202, end: 20250425
  3. BISOPROLOL CRISTERS [Concomitant]
  4. ATORVASTATIN [Concomitant]
     Active Substance: ATORVASTATIN
  5. KARDEGIC [Concomitant]
     Active Substance: ASPIRIN DL-LYSINE
  6. PREDNISONE [Concomitant]
     Active Substance: PREDNISONE
  7. OXAZEPAM [Concomitant]
     Active Substance: OXAZEPAM
  8. FOLIC ACID [Concomitant]
     Active Substance: FOLIC ACID
  9. SILODOSINE ARROW [Concomitant]
  10. EFFEXOR [Concomitant]
     Active Substance: VENLAFAXINE HYDROCHLORIDE
  11. POLYETHYLENE GLYCOL 4000 [Concomitant]
     Active Substance: POLYETHYLENE GLYCOL 4000
  12. DOLIPRANE [Concomitant]
     Active Substance: ACETAMINOPHEN
  13. ESOMEPRAZOLE [Concomitant]
     Active Substance: ESOMEPRAZOLE
  14. FLECTOR [Concomitant]
     Active Substance: DICLOFENAC EPOLAMINE

REACTIONS (6)
  - Overdose [Fatal]
  - Product prescribing error [Fatal]
  - Febrile bone marrow aplasia [Fatal]
  - Mucosal inflammation [Fatal]
  - Mucosal haemorrhage [Fatal]
  - Product use in unapproved indication [Unknown]

NARRATIVE: CASE EVENT DATE: 20250101
